FAERS Safety Report 24381607 (Version 2)
Quarter: 2024Q4

REPORT INFORMATION
  Report Type: Spontaneous
  Country: AR (occurrence: AR)
  Receive Date: 20241001
  Receipt Date: 20241028
  Transmission Date: 20250114
  Serious: Yes (Other)
  Sender: SANDOZ
  Company Number: AR-SANDOZ-SDZ2024AR048969

PATIENT
  Age: 11 Year
  Sex: Female
  Weight: 35 kg

DRUGS (3)
  1. OMNITROPE [Suspect]
     Active Substance: SOMATROPIN
     Indication: Short stature
     Dosage: 1.3 (DOSE: 7)
     Route: 058
     Dates: start: 20210501
  2. OMNITROPE [Suspect]
     Active Substance: SOMATROPIN
     Dosage: 1.2 MG, QW (7 DAYS A WEEK)
     Route: 058
     Dates: start: 20210501, end: 20240815
  3. OMNITROPE [Suspect]
     Active Substance: SOMATROPIN
     Dosage: 1.2 UNK
     Route: 058
     Dates: start: 202402

REACTIONS (5)
  - Congenital central nervous system anomaly [Unknown]
  - Intracranial pressure increased [Unknown]
  - Hormone level abnormal [Unknown]
  - Insulin-like growth factor increased [Unknown]
  - Headache [Not Recovered/Not Resolved]

NARRATIVE: CASE EVENT DATE: 20240201
